FAERS Safety Report 10094450 (Version 2)
Quarter: 2014Q2

REPORT INFORMATION
  Report Type: Spontaneous
  Country: TW (occurrence: TW)
  Receive Date: 20140422
  Receipt Date: 20140501
  Transmission Date: 20141212
  Serious: Yes (Hospitalization)
  Sender: FDA-Public Use
  Company Number: TW-AMGEN-TWNSP2014029155

PATIENT
  Age: 37 Year
  Sex: Female

DRUGS (3)
  1. ENBREL [Suspect]
     Indication: RHEUMATOID ARTHRITIS
     Dosage: 25 MG, 2X/WEEK
     Route: 058
     Dates: end: 201306
  2. ENBREL [Suspect]
     Dosage: 25 MG, AS NEEDED
     Route: 058
     Dates: start: 201307, end: 201308
  3. ENBREL [Suspect]
     Dosage: 25 MG, BIW
     Route: 058
     Dates: start: 201402

REACTIONS (2)
  - Caesarean section [Unknown]
  - Blood pressure increased [Unknown]
